FAERS Safety Report 12878274 (Version 1)
Quarter: 2016Q4

REPORT INFORMATION
  Report Type: Spontaneous
  Country: US (occurrence: US)
  Receive Date: 20161024
  Receipt Date: 20161024
  Transmission Date: 20170207
  Serious: Yes (Hospitalization)
  Sender: FDA-Public Use
  Company Number: PHEH2016US027061

PATIENT
  Sex: Female

DRUGS (1)
  1. RECLAST [Suspect]
     Active Substance: ZOLEDRONIC ACID
     Indication: PRODUCT USED FOR UNKNOWN INDICATION
     Route: 065

REACTIONS (8)
  - Weight decreased [Unknown]
  - Malaise [Not Recovered/Not Resolved]
  - Chills [Unknown]
  - Dehydration [Unknown]
  - Chromaturia [Unknown]
  - Feeling abnormal [Unknown]
  - Vomiting [Unknown]
  - Malnutrition [Unknown]
